FAERS Safety Report 25359905 (Version 1)
Quarter: 2025Q2

REPORT INFORMATION
  Report Type: Spontaneous
  Country: JP (occurrence: JP)
  Receive Date: 20250526
  Receipt Date: 20250526
  Transmission Date: 20250717
  Serious: Yes (Hospitalization)
  Sender: BOEHRINGER INGELHEIM
  Company Number: JP-NBI-2025-BI-072178

PATIENT
  Age: 89 Year
  Sex: Male
  Weight: 69.1 kg

DRUGS (13)
  1. LINAGLIPTIN [Suspect]
     Active Substance: LINAGLIPTIN
     Indication: Diabetes mellitus
     Dosage: AFTER BREAKFAST
     Dates: start: 20250311, end: 20250430
  2. TELMISARTAN [Concomitant]
     Active Substance: TELMISARTAN
     Indication: Hypertension
  3. AMLODIPINE [Concomitant]
     Active Substance: AMLODIPINE BESYLATE
     Indication: Hypertension
  4. ASPIRIN [Concomitant]
     Active Substance: ASPIRIN
     Indication: Angina pectoris
  5. GLIMEPIRIDE [Concomitant]
     Active Substance: GLIMEPIRIDE
     Indication: Diabetes mellitus
  6. ELSAMET [Concomitant]
     Indication: Benign prostatic hyperplasia
  7. SILODOSIN OD [Concomitant]
     Indication: Benign prostatic hyperplasia
  8. TAPROS [Concomitant]
     Indication: Glaucoma
  9. SODIUM GUALENATE MONOHYDRATE [Concomitant]
     Active Substance: SODIUM GUALENATE MONOHYDRATE
  10. AZUNOL [Concomitant]
  11. FAMOTIDINE [Concomitant]
     Active Substance: FAMOTIDINE
  12. GLIMEPIRIDE [Concomitant]
     Active Substance: GLIMEPIRIDE
  13. HUMULIN R [Concomitant]
     Active Substance: INSULIN HUMAN

REACTIONS (5)
  - Pyrexia [Unknown]
  - Bacteraemia [Unknown]
  - Pemphigoid [Recovering/Resolving]
  - Erythema [Unknown]
  - Blister [Unknown]

NARRATIVE: CASE EVENT DATE: 20250423
